FAERS Safety Report 9829908 (Version 2)
Quarter: 2014Q1

REPORT INFORMATION
  Report Type: Report from Study
  Country: DK (occurrence: DK)
  Receive Date: 20140120
  Receipt Date: 20140123
  Transmission Date: 20141002
  Serious: Yes (Hospitalization)
  Sender: FDA-Public Use
  Company Number: DK-ASTELLAS-2014US000289

PATIENT
  Age: 79 Year
  Sex: Male
  Weight: 78 kg

DRUGS (11)
  1. ENZALUTAMIDE [Suspect]
     Indication: PROSTATE CANCER
     Dosage: 160 UNK, UID/QD
     Route: 048
     Dates: start: 20111019
  2. MAGNYL                             /00002701/ [Concomitant]
     Indication: PROPHYLAXIS
     Dosage: 75 MG, UID/QD
     Route: 048
     Dates: start: 2008
  3. UNIKALK WITH VITAMIN D [Concomitant]
     Indication: PROPHYLAXIS
     Dosage: 1 TABLET, UID/QD
     Route: 048
     Dates: start: 201104
  4. PANODIL [Concomitant]
     Indication: BACK PAIN
     Dosage: 1000 MG, PRN
     Route: 048
     Dates: start: 200106
  5. IPREN [Concomitant]
     Indication: BACK PAIN
     Dosage: 200 MG, PRN
     Route: 048
     Dates: start: 200106
  6. PANTOPRAZOL [Concomitant]
     Indication: PROPHYLAXIS AGAINST GASTROINTESTINAL ULCER
     Dosage: 40 MG, UID/QD
     Route: 048
     Dates: start: 20130805
  7. ALENDRONATE [Concomitant]
     Indication: PRODUCT USED FOR UNKNOWN INDICATION
     Dosage: UNK
     Route: 065
     Dates: start: 201309, end: 2014
  8. LAKTULOSE [Concomitant]
     Indication: CONSTIPATION
     Dosage: 30 ML, UNKNOWN/D
     Route: 048
     Dates: start: 20130909
  9. MORPHINE [Concomitant]
     Indication: BACK PAIN
     Dosage: UNK
     Route: 065
  10. KLORZOXAZONE [Concomitant]
     Indication: PRODUCT USED FOR UNKNOWN INDICATION
     Dosage: UNK
     Route: 065
  11. PINEX                              /00020001/ [Concomitant]
     Indication: PRODUCT USED FOR UNKNOWN INDICATION
     Dosage: UNK
     Route: 065

REACTIONS (1)
  - Palpitations [Recovered/Resolved]
